FAERS Safety Report 8955892 (Version 1)
Quarter: 2012Q4

REPORT INFORMATION
  Report Type: 
  Country: JP (occurrence: JP)
  Receive Date: 20121210
  Receipt Date: 20121210
  Transmission Date: 20130627
  Serious: Yes (Other)
  Sender: FDA-Public Use
  Company Number: JP-009507513-1212JPN002503

PATIENT
  Age: 69 Year
  Sex: Female
  Weight: 57 kg

DRUGS (8)
  1. PEGINTRON [Suspect]
     Indication: CHRONIC HEPATITIS C
     Dosage: 1.5 Microgram per kilogram, qw
     Route: 058
     Dates: start: 20120821, end: 20121016
  2. REBETOL [Suspect]
     Indication: CHRONIC HEPATITIS C
     Dosage: 600 mg, qd
     Route: 048
     Dates: start: 20120821, end: 20120918
  3. REBETOL [Suspect]
     Dosage: 400 mg, qd
     Route: 048
     Dates: start: 20120919
  4. REBETOL [Suspect]
     Dosage: 600 mg, qd
     Route: 048
     Dates: end: 20121016
  5. TELAVIC [Suspect]
     Indication: CHRONIC HEPATITIS C
     Dosage: 1500 mg, qd
     Route: 048
     Dates: start: 20120821, end: 20121016
  6. OLMETEC [Concomitant]
     Indication: HYPERTENSION
     Dosage: 20 mg, qd
     Route: 048
  7. CALBLOCK [Concomitant]
     Indication: HYPERTENSION
     Dosage: 16 mg, qd
     Route: 048
  8. NESINA [Concomitant]
     Indication: DIABETES MELLITUS
     Dosage: 25 mg, qd
     Route: 048

REACTIONS (2)
  - Drug eruption [Recovering/Resolving]
  - Anaemia [Not Recovered/Not Resolved]
